FAERS Safety Report 17474574 (Version 1)
Quarter: 2020Q1

REPORT INFORMATION
  Report Type: Spontaneous
  Country: CN (occurrence: CN)
  Receive Date: 20200228
  Receipt Date: 20200228
  Transmission Date: 20200409
  Serious: Yes (Death, Hospitalization, Other)
  Sender: FDA-Public Use
  Company Number: CN-CASPER PHARMA LLC-2020CAS000088

PATIENT
  Age: 41 Year
  Sex: Female

DRUGS (1)
  1. PENICILLIN G BENZATHINE [Suspect]
     Active Substance: PENICILLIN G BENZATHINE
     Indication: PRODUCT USED FOR UNKNOWN INDICATION
     Dosage: 400,000  UNITS
     Route: 030

REACTIONS (3)
  - Foetal death [Recovered/Resolved]
  - Exposure during pregnancy [Unknown]
  - Anaphylactic reaction [Fatal]
